FAERS Safety Report 20167164 (Version 2)
Quarter: 2021Q4

REPORT INFORMATION
  Report Type: Report from Study
  Country: SG (occurrence: SG)
  Receive Date: 20211209
  Receipt Date: 20211224
  Transmission Date: 20220304
  Serious: Yes (Other)
  Sender: FDA-Public Use
  Company Number: SG-TEVA-2021-SG-1984814

PATIENT
  Age: 76 Year
  Sex: Female

DRUGS (2)
  1. PREDNISOLONE [Suspect]
     Active Substance: PREDNISOLONE
     Indication: Pemphigus
     Dosage: 50 MILLIGRAM DAILY; PREDNISOLONE 50 MG/DAY FOR 14 MONTHS WITH A TAPERING DOSE.
     Route: 065
  2. MYCOPHENOLATE MOFETIL [Suspect]
     Active Substance: MYCOPHENOLATE MOFETIL
     Indication: Pemphigus
     Dosage: 1.5 GRAM DAILY; ADMINISTERED FOR 12 MONTHS.
     Route: 065

REACTIONS (1)
  - Hepatitis B reactivation [Unknown]
